FAERS Safety Report 24873936 (Version 1)
Quarter: 2025Q1

REPORT INFORMATION
  Report Type: Spontaneous
  Country: US (occurrence: None)
  Receive Date: 20250121
  Receipt Date: 20250121
  Transmission Date: 20250409
  Serious: Yes (Life-Threatening, Other)
  Sender: FDA-CTU
  Company Number: None

PATIENT
  Age: 69 Year
  Sex: Female
  Weight: 58.5 kg

DRUGS (2)
  1. INFLECTRA [Suspect]
     Active Substance: INFLIXIMAB-DYYB
     Indication: Rheumatoid arthritis
     Dosage: OTHER QUANTITY : 2 I.V. INFUSION;?OTHER FREQUENCY : EVERY 8 WEEKS;?OTHER ROUTE : I.V. INFUSION OVER ABOUT 2 HRS.;?
     Route: 050
     Dates: start: 20220224, end: 20240321
  2. AVSOLA [Suspect]
     Active Substance: INFLIXIMAB-AXXQ

REACTIONS (1)
  - Breast cancer [None]

NARRATIVE: CASE EVENT DATE: 20241030
